FAERS Safety Report 5113601-2 (Version None)
Quarter: 2006Q3

REPORT INFORMATION
  Report Type: 
  Country: None (occurrence: None)
  Receive Date: 20060925
  Receipt Date: 20060105
  Transmission Date: 20061208
  Serious: Yes (Death, Life-Threatening, Hospitalization)
  Sender: FDA-Public Use
  Company Number: US-BAYER-200610082BWH

PATIENT
  Age: 56 Year
  Sex: Male
  Weight: 70 kg

DRUGS (20)
  1. SORAFENIB [Suspect]
     Indication: METASTATIC RENAL CELL CARCINOMA
     Dosage: TOTAL DAILY DOSE: 800 MG  UNIT DOSE: 200 MG
     Route: 048
     Dates: start: 20060107, end: 20060113
  2. SORAFENIB [Suspect]
     Dosage: TOTAL DAILY DOSE: 800 MG  UNIT DOSE: 200 MG
     Route: 048
     Dates: start: 20050826, end: 20060105
  3. COUMADIN [Concomitant]
     Indication: DEEP VEIN THROMBOSIS
     Route: 048
     Dates: start: 20050211, end: 20051231
  4. COUMADIN [Concomitant]
     Route: 048
     Dates: start: 20050211, end: 20051231
  5. MULTI-VITAMIN [Concomitant]
     Indication: PROPHYLAXIS
     Route: 048
     Dates: start: 20040918, end: 20060118
  6. OXYCODONE HCL [Concomitant]
     Indication: PAIN
     Route: 048
     Dates: start: 20051216, end: 20060118
  7. DOXYCYCLINE [Concomitant]
     Indication: EYELID INFECTION
     Dosage: TOTAL DAILY DOSE: 200 MG
     Route: 048
     Dates: start: 20051223, end: 20060101
  8. ARANESP [Concomitant]
     Indication: ANAEMIA
     Route: 058
     Dates: start: 20050901, end: 20050927
  9. ARANESP [Concomitant]
     Route: 058
     Dates: start: 20051021, end: 20060118
  10. MS CONTIN [Concomitant]
     Indication: PAIN
     Dosage: TOTAL DAILY DOSE: 60 MG
     Route: 048
     Dates: start: 20060117, end: 20060118
  11. LOVENOX [Concomitant]
     Indication: ANTICOAGULANT THERAPY
     Dosage: TOTAL DAILY DOSE: 180 MG
     Route: 058
  12. LOVENOX [Concomitant]
     Route: 058
     Dates: start: 20060109, end: 20060118
  13. LASIX [Concomitant]
     Indication: OEDEMA
     Dosage: TOTAL DAILY DOSE: 80 MG
     Route: 042
     Dates: start: 20060116, end: 20060118
  14. MUCOMYST [Concomitant]
     Indication: PROPHYLAXIS
     Dosage: TOTAL DAILY DOSE: 1200 MG
     Route: 048
     Dates: start: 20060116, end: 20060118
  15. COLACE [Concomitant]
     Indication: CONSTIPATION PROPHYLAXIS
     Dosage: TOTAL DAILY DOSE: 200 MG
     Route: 048
     Dates: start: 20060116, end: 20060118
  16. TYLENOL [Concomitant]
     Indication: HEADACHE
     Route: 048
     Dates: start: 20060116, end: 20060118
  17. NEXIUM [Concomitant]
     Indication: GASTROINTESTINAL DISORDER
     Route: 048
     Dates: start: 20060116, end: 20060118
  18. PREDNISONE [Concomitant]
     Route: 048
     Dates: start: 20060116, end: 20060118
  19. ROBITUSSIN [Concomitant]
     Indication: COUGH
     Dosage: TOTAL DAILY DOSE: 60 ML
     Route: 048
     Dates: start: 20060116, end: 20060118
  20. DUONEB [Concomitant]
     Indication: WHEEZING
     Route: 055
     Dates: start: 20060116, end: 20060118

REACTIONS (15)
  - ACTIVATED PARTIAL THROMBOPLASTIN TIME PROLONGED [None]
  - ANAEMIA [None]
  - ASCITES [None]
  - BACTEROIDES INFECTION [None]
  - CHOLELITHIASIS [None]
  - CONFUSIONAL STATE [None]
  - HEART RATE INCREASED [None]
  - HYPOTENSION [None]
  - HYPOXIA [None]
  - INTERNATIONAL NORMALISED RATIO INCREASED [None]
  - INTESTINAL PERFORATION [None]
  - LEUKOCYTOSIS [None]
  - PERITONITIS BACTERIAL [None]
  - PLEURAL EFFUSION [None]
  - RESPIRATORY RATE INCREASED [None]
